FAERS Safety Report 24675261 (Version 2)
Quarter: 2024Q4

REPORT INFORMATION
  Report Type: Report from Study
  Country: US (occurrence: US)
  Receive Date: 20241128
  Receipt Date: 20241217
  Transmission Date: 20250115
  Serious: No
  Sender: TAIHO ONCOLOGY INC
  Company Number: US-TAIHOP-2024-011203

PATIENT
  Sex: Male
  Weight: 83.91 kg

DRUGS (6)
  1. LONSURF [Suspect]
     Active Substance: TIPIRACIL HYDROCHLORIDE\TRIFLURIDINE
     Indication: Metastases to liver
     Dosage: CYCLE UNKNOWN
     Route: 048
     Dates: start: 202410
  2. LONSURF [Suspect]
     Active Substance: TIPIRACIL HYDROCHLORIDE\TRIFLURIDINE
     Indication: Cholangiocarcinoma
  3. AVASTIN [Concomitant]
     Active Substance: BEVACIZUMAB
     Indication: Product used for unknown indication
  4. IMODIUM A-D [Concomitant]
     Active Substance: LOPERAMIDE HYDROCHLORIDE
     Indication: Product used for unknown indication
  5. MAGNESIUM [Concomitant]
     Active Substance: MAGNESIUM
     Indication: Product used for unknown indication
  6. POTASSIUM GLUCONATE [Concomitant]
     Active Substance: POTASSIUM GLUCONATE
     Indication: Product used for unknown indication

REACTIONS (9)
  - Neuropathy peripheral [Unknown]
  - Diarrhoea [Unknown]
  - Fatigue [Unknown]
  - Accidental underdose [Unknown]
  - Product use in unapproved indication [Unknown]
  - Asthenia [Unknown]
  - Influenza [Unknown]
  - Nausea [Unknown]
  - Gait disturbance [Unknown]
